FAERS Safety Report 8500207-8 (Version None)
Quarter: 2012Q3

REPORT INFORMATION
  Report Type: 
  Country: None (occurrence: None)
  Receive Date: 20120710
  Receipt Date: 20120703
  Transmission Date: 20120928
  Serious: No
  Sender: FDA-Public Use
  Company Number: US-PFIZER INC-2012115750

PATIENT
  Sex: Male
  Weight: 87.528 kg

DRUGS (13)
  1. LORTAB [Concomitant]
     Dosage: 10/500 MG, AS NEEDED
  2. ZOVIRAX [Concomitant]
     Dosage: 400 MG
  3. SINGULAIR [Concomitant]
     Dosage: UNK
  4. LYRICA [Suspect]
     Indication: PAIN
     Dosage: 75 MG, 2X/DAY
     Route: 048
     Dates: start: 20080101
  5. VENTOLIN [Concomitant]
     Dosage: UNK
  6. NEXIUM [Concomitant]
     Dosage: UNK
  7. FLOMAX [Concomitant]
     Dosage: 0.4 MG
  8. ACETYLSALICYLIC ACID [Concomitant]
     Dosage: LOW DOSE
  9. PHENERGAN HCL [Concomitant]
     Dosage: UNK
  10. VIAGRA [Concomitant]
     Dosage: UNK, AS NEEDED
  11. LYRICA [Suspect]
  12. ADVAIR DISKUS 100/50 [Concomitant]
     Dosage: TWO TIMES A DAY
  13. LEXAPRO [Concomitant]
     Dosage: 20 MG

REACTIONS (1)
  - WEIGHT INCREASED [None]
